FAERS Safety Report 10485968 (Version 2)
Quarter: 2015Q2

REPORT INFORMATION
  Report Type: Spontaneous
  Country: US (occurrence: None)
  Receive Date: 20140929
  Receipt Date: 20150402
  Transmission Date: 20150821
  Serious: Yes (Death)
  Sender: FDA-Public Use
  Company Number: 2014-US-012134

PATIENT
  Age: 41 Year
  Sex: Female

DRUGS (3)
  1. FAZACLO [Suspect]
     Active Substance: CLOZAPINE
     Indication: VICTIM OF SEXUAL ABUSE
     Route: 048
     Dates: start: 20140721
  2. QUETIAPINE (QUETIAPINE FUMARATE) [Concomitant]
     Active Substance: QUETIAPINE
  3. FAZACLO [Suspect]
     Active Substance: CLOZAPINE
     Indication: AGITATION
     Route: 048
     Dates: start: 20140721

REACTIONS (2)
  - Cardiac arrest [None]
  - Off label use [None]

NARRATIVE: CASE EVENT DATE: 2014
